FAERS Safety Report 21379360 (Version 1)
Quarter: 2022Q3

REPORT INFORMATION
  Report Type: Spontaneous
  Country: US (occurrence: US)
  Receive Date: 20220927
  Receipt Date: 20220927
  Transmission Date: 20221027
  Serious: Yes (Other)
  Sender: FDA-Public Use
  Company Number: US-BRISTOL-MYERS SQUIBB COMPANY-2022-110599

PATIENT
  Age: 54 Year
  Sex: Female

DRUGS (1)
  1. ENASIDENIB [Suspect]
     Active Substance: ENASIDENIB
     Indication: Non-small cell lung cancer
     Route: 065

REACTIONS (2)
  - Differentiation syndrome [Recovered/Resolved]
  - Off label use [Unknown]
